FAERS Safety Report 9738597 (Version 3)
Quarter: 2014Q1

REPORT INFORMATION
  Report Type: Report from Study
  Country: US (occurrence: US)
  Receive Date: 20131209
  Receipt Date: 20140324
  Transmission Date: 20141002
  Serious: Yes (Other)
  Sender: FDA-Public Use
  Company Number: US-ROCHE-1014573

PATIENT
  Age: 49 Year
  Sex: Female

DRUGS (4)
  1. RANIBIZUMAB [Suspect]
     Indication: AGE-RELATED MACULAR DEGENERATION
     Route: 050
     Dates: start: 20120525, end: 20120911
  2. BEVACIZUMAB [Suspect]
     Indication: AGE-RELATED MACULAR DEGENERATION
     Route: 050
     Dates: start: 20110520, end: 20120417
  3. LOTREL [Concomitant]
     Route: 065
  4. ASACOL [Concomitant]

REACTIONS (3)
  - Ocular hyperaemia [Unknown]
  - Eye swelling [Unknown]
  - Ocular icterus [Unknown]
